FAERS Safety Report 5232670-2 (Version None)
Quarter: 2007Q1

REPORT INFORMATION
  Report Type: 
  Country: None (occurrence: None)
  Receive Date: 20070206
  Receipt Date: 20070206
  Transmission Date: 20070707
  Serious: Yes (Other)
  Sender: FDA-Public Use
  Company Number: None

PATIENT
  Age: 77 Year
  Sex: Female
  Weight: 58.0604 kg

DRUGS (2)
  1. MEDROXYPROGESTERONE [Suspect]
  2. ATENOLOL [Concomitant]

REACTIONS (4)
  - DRUG DISPENSING ERROR [None]
  - FEELING ABNORMAL [None]
  - MEDICATION ERROR [None]
  - POOR QUALITY DRUG ADMINISTERED [None]
